FAERS Safety Report 9839521 (Version 1)
Quarter: 2014Q1

REPORT INFORMATION
  Report Type: Spontaneous
  Country: US (occurrence: US)
  Receive Date: 20140124
  Receipt Date: 20140124
  Transmission Date: 20141002
  Serious: No
  Sender: FDA-Public Use
  Company Number: US-009507513-1401USA008155

PATIENT
  Age: 29 Year
  Sex: Female
  Weight: 88.89 kg

DRUGS (2)
  1. NEXPLANON [Suspect]
     Indication: CONTRACEPTION
     Dosage: UNK
     Route: 059
     Dates: start: 20130904
  2. IBUPROFEN [Concomitant]

REACTIONS (5)
  - Contusion [Recovered/Resolved]
  - Local swelling [Unknown]
  - Implant site pain [Unknown]
  - Hypoaesthesia [Unknown]
  - Injected limb mobility decreased [Unknown]
